FAERS Safety Report 6805227-7 (Version None)
Quarter: 2010Q2

REPORT INFORMATION
  Report Type: 
  Country: None (occurrence: None)
  Receive Date: 20100628
  Receipt Date: 20071009
  Transmission Date: 20101027
  Serious: No
  Sender: FDA-Public Use
  Company Number: US-PFIZER INC-2007084768

PATIENT
  Sex: Male
  Weight: 95.454 kg

DRUGS (2)
  1. CADUET [Suspect]
     Indication: HYPERTENSION
     Dosage: 5/40MG
     Route: 048
     Dates: start: 20070901, end: 20070901
  2. CADUET [Suspect]
     Indication: BLOOD CHOLESTEROL INCREASED

REACTIONS (2)
  - ANGER [None]
  - DEPRESSION [None]
